FAERS Safety Report 9486195 (Version 1)
Quarter: 2013Q3

REPORT INFORMATION
  Report Type: Spontaneous
  Country: BR (occurrence: BR)
  Receive Date: 20130829
  Receipt Date: 20130829
  Transmission Date: 20140515
  Serious: Yes (Other)
  Sender: FDA-Public Use
  Company Number: BR-PFIZER INC-2013247764

PATIENT
  Age: 71 Year
  Sex: Female
  Weight: 80 kg

DRUGS (2)
  1. CELEBRA [Suspect]
     Indication: PAIN
     Dosage: 200 MG, UNK
     Route: 048
     Dates: start: 2008, end: 201308
  2. CITALOPRAM [Concomitant]
     Indication: DEPRESSION
     Dosage: UNK
     Dates: start: 2008

REACTIONS (4)
  - Intervertebral disc protrusion [Unknown]
  - Walking disability [Unknown]
  - Osteoarthritis [Unknown]
  - Drug ineffective [Not Recovered/Not Resolved]
